FAERS Safety Report 16220452 (Version 1)
Quarter: 2019Q2

REPORT INFORMATION
  Report Type: Report from Study
  Country: US (occurrence: US)
  Receive Date: 20190420
  Receipt Date: 20190420
  Transmission Date: 20190711
  Serious: No
  Sender: FDA-Public Use
  Company Number: PHEH2019US016835

PATIENT
  Age: 6 Year
  Sex: Male

DRUGS (1)
  1. COSENTYX [Suspect]
     Active Substance: SECUKINUMAB
     Indication: PSORIASIS
     Dosage: 150 MG, QMO
     Route: 058

REACTIONS (3)
  - Vomiting [Unknown]
  - Malaise [Unknown]
  - Pharyngitis streptococcal [Unknown]
